FAERS Safety Report 7510167-4 (Version None)
Quarter: 2011Q2

REPORT INFORMATION
  Report Type: 
  Country: None (occurrence: None)
  Receive Date: 20110527
  Receipt Date: 20110516
  Transmission Date: 20111010
  Serious: Yes (Hospitalization)
  Sender: FDA-Public Use
  Company Number: US-UCBSA-031459

PATIENT
  Sex: Female
  Weight: 85 kg

DRUGS (2)
  1. CIMZIA [Suspect]
     Indication: CROHN'S DISEASE
     Route: 058
     Dates: start: 20080618
  2. CIMZIA [Suspect]
     Route: 058
     Dates: start: 20090209

REACTIONS (3)
  - CROHN'S DISEASE [None]
  - ABDOMINAL HERNIA [None]
  - HOSPITALISATION [None]
